FAERS Safety Report 11457425 (Version 2)
Quarter: 2015Q3

REPORT INFORMATION
  Report Type: Spontaneous
  Country: US (occurrence: US)
  Receive Date: 20150904
  Receipt Date: 20150908
  Transmission Date: 20151125
  Serious: No
  Sender: FDA-Public Use
  Company Number: PHEH2014US022845

PATIENT
  Sex: Female

DRUGS (2)
  1. VIVELLE DOT [Suspect]
     Active Substance: ESTRADIOL
     Indication: PRODUCT USED FOR UNKNOWN INDICATION
     Dosage: 0.037 MG, BIW
     Route: 062
  2. FIBER [Concomitant]
     Active Substance: PSYLLIUM HUSK
     Indication: PRODUCT USED FOR UNKNOWN INDICATION
     Dosage: 4 DF, UNK
     Route: 065

REACTIONS (4)
  - Influenza like illness [Unknown]
  - Pain [Unknown]
  - Wrong technique in product usage process [Unknown]
  - Asthenia [Unknown]
